FAERS Safety Report 10036131 (Version 3)
Quarter: 2014Q2

REPORT INFORMATION
  Report Type: Report from Study
  Country: ES (occurrence: ES)
  Receive Date: 20140325
  Receipt Date: 20140520
  Transmission Date: 20141212
  Serious: Yes (Hospitalization)
  Sender: FDA-Public Use
  Company Number: ES-VERTEX PHARMACEUTICALS INC-2014-001532

PATIENT
  Age: 59 Year
  Sex: Female

DRUGS (12)
  1. VX-950 (TELAPREVIR) [Suspect]
     Indication: CHRONIC HEPATITIS C
     Dosage: 2250 MG, QD
     Route: 048
     Dates: start: 20131009, end: 20140101
  2. Z-PEGYLATED INTERFERON-2A [Suspect]
     Indication: CHRONIC HEPATITIS C
     Dosage: 180 ?G, QW
     Route: 058
     Dates: start: 20131009, end: 20140101
  3. PEGINTERFERON LAMBDA-1A [Suspect]
     Indication: CHRONIC HEPATITIS C
     Dosage: DOSAGE FORM: SOLUTION
     Route: 058
     Dates: start: 20131009, end: 20140101
  4. Z-RIBAVIRIN [Suspect]
     Indication: CHRONIC HEPATITIS C
     Dosage: 600 MG, QD
     Route: 048
     Dates: start: 20131009, end: 20140103
  5. CITALOPRAM [Concomitant]
     Dosage: UNK
     Route: 065
     Dates: start: 2003
  6. IBANDRONIC ACID [Concomitant]
     Dosage: UNK
     Route: 065
     Dates: start: 2009
  7. METOCLOPRAMIDE [Concomitant]
     Dosage: UNK
     Route: 065
     Dates: start: 200311
  8. LORAZEPAM [Concomitant]
     Dosage: UNK
     Route: 065
     Dates: start: 20131106
  9. OMEPRAZOLE [Concomitant]
     Dosage: UNK
     Route: 065
     Dates: start: 20131106
  10. HYDROXYZINE [Concomitant]
     Dosage: UNK
     Route: 065
     Dates: start: 20131225
  11. LORATADINE [Concomitant]
     Dosage: UNK
     Dates: start: 20131226
  12. DIPYRONE [Concomitant]
     Dosage: UNK
     Route: 065

REACTIONS (1)
  - Hepatic enzyme increased [Recovered/Resolved]
